FAERS Safety Report 9274823 (Version 10)
Quarter: 2013Q4

REPORT INFORMATION
  Report Type: Spontaneous
  Country: US (occurrence: US)
  Receive Date: 20130507
  Receipt Date: 20131129
  Transmission Date: 20140711
  Serious: Yes (Other)
  Sender: FDA-Public Use
  Company Number: US-JNJFOC-20130502535

PATIENT
  Age: 17 Year
  Sex: Female

DRUGS (4)
  1. TOPAMAX [Suspect]
     Indication: MIGRAINE
     Route: 048
     Dates: start: 200303, end: 200310
  2. MAXALT [Suspect]
     Indication: MIGRAINE
     Route: 065
  3. NATAFORT [Concomitant]
     Indication: VITAMIN SUPPLEMENTATION
     Route: 065
  4. NATELLE [Concomitant]
     Indication: VITAMIN SUPPLEMENTATION
     Route: 065

REACTIONS (6)
  - Premature delivery [Recovered/Resolved]
  - Haemorrhage in pregnancy [Unknown]
  - Exposure during pregnancy [Recovered/Resolved]
  - Oligohydramnios [Unknown]
  - Foetal growth restriction [Unknown]
  - Emotional disorder [Unknown]
